FAERS Safety Report 5842199-6 (Version None)
Quarter: 2008Q3

REPORT INFORMATION
  Report Type: 
  Country: None (occurrence: None)
  Receive Date: 20080812
  Receipt Date: 20080811
  Transmission Date: 20090109
  Serious: Yes (Hospitalization)
  Sender: FDA-Public Use
  Company Number: PL-BRISTOL-MYERS SQUIBB COMPANY-14142798

PATIENT
  Age: 44 Year
  Sex: Male
  Weight: 65 kg

DRUGS (6)
  1. TAXOL [Suspect]
     Indication: GERM CELL CANCER
     Dosage: INITIATED ON 02-DEC-2007 ACTUAL DOSE: 315 MG
     Route: 042
     Dates: start: 20080208, end: 20080208
  2. DDP [Suspect]
     Indication: GERM CELL CANCER
     Dosage: DATE OF FIRST ADMINISTRATION - 07DEC2007 ACTUAL DOSE: 36 MG
     Route: 042
     Dates: start: 20080212, end: 20080212
  3. ETOPOSIDE [Suspect]
     Indication: GERM CELL CANCER
     Dosage: INITIATED ON 07-DEC-2007 ACTUAL DOSE: 180 MG
     Dates: start: 20080212, end: 20080212
  4. BLEOMYCIN SULFATE [Suspect]
     Indication: GERM CELL CANCER
     Dosage: INITIATED ON 07-DEC-2007 ACTUAL DOSE: 30MG
     Dates: start: 20080208, end: 20080208
  5. OMEPRAZOLE [Concomitant]
     Dates: start: 20071207
  6. ONDANSETRON [Concomitant]
     Dates: start: 20071207, end: 20080218

REACTIONS (1)
  - HAEMOGLOBIN DECREASED [None]
